FAERS Safety Report 10490220 (Version 2)
Quarter: 2014Q4

REPORT INFORMATION
  Report Type: Spontaneous
  Country: US (occurrence: US)
  Receive Date: 20141002
  Receipt Date: 20141028
  Transmission Date: 20150528
  Serious: Yes (Other)
  Sender: FDA-Public Use
  Company Number: US-MYLANLABS-2014M1005720

PATIENT

DRUGS (14)
  1. DRONABINOL. [Suspect]
     Active Substance: DRONABINOL
     Indication: NEURALGIA
     Dosage: 5 MG, QD
     Route: 048
     Dates: start: 20140715, end: 20140716
  2. DRONABINOL SOFTGEL CAPS [Suspect]
     Active Substance: DRONABINOL
     Indication: OFF LABEL USE
     Dosage: 2.5 MG, QD
     Route: 048
     Dates: start: 20140916, end: 20140917
  3. LYRICA [Concomitant]
     Active Substance: PREGABALIN
     Indication: PAIN
     Dosage: 25 MG, BID
     Route: 048
  4. CHLORELLA                          /01723301/ [Concomitant]
     Dosage: UNK
  5. DRONABINOL SOFTGEL CAPS [Suspect]
     Active Substance: DRONABINOL
     Indication: NEURALGIA
     Dosage: 2.5 MG, QD
     Route: 048
     Dates: start: 20140916, end: 20140917
  6. MULTIVITAMIN                       /00097801/ [Concomitant]
     Active Substance: VITAMINS
     Dosage: UNK
  7. DRONABINOL. [Suspect]
     Active Substance: DRONABINOL
     Indication: PAIN
  8. OMEGA 3                            /01333901/ [Concomitant]
     Dosage: UNK
  9. DRONABINOL SOFTGEL CAPS [Suspect]
     Active Substance: DRONABINOL
     Indication: PAIN
  10. ATENOLOL. [Concomitant]
     Active Substance: ATENOLOL
     Dosage: 50 MG, QD
  11. PREVACID [Concomitant]
     Active Substance: LANSOPRAZOLE
     Indication: HIATUS HERNIA
     Dosage: 30 MG, UNK
  12. DRONABINOL. [Suspect]
     Active Substance: DRONABINOL
     Indication: OFF LABEL USE
  13. BONE UP [Concomitant]
     Dosage: UNK
  14. D3 [Concomitant]
     Active Substance: 25-HYDROXYCHOLECALCIFEROL, 5-TRANS-
     Dosage: UNK

REACTIONS (21)
  - Mood altered [Not Recovered/Not Resolved]
  - Vomiting [Recovered/Resolved]
  - Dry mouth [Not Recovered/Not Resolved]
  - Throat tightness [Recovered/Resolved]
  - Abdominal pain [Not Recovered/Not Resolved]
  - Anxiety [Not Recovered/Not Resolved]
  - Flushing [Recovered/Resolved]
  - Dizziness [Not Recovered/Not Resolved]
  - Dysarthria [Not Recovered/Not Resolved]
  - Heart rate increased [Recovered/Resolved]
  - Hypervigilance [Recovered/Resolved]
  - Coordination abnormal [Not Recovered/Not Resolved]
  - Blood pressure increased [Not Recovered/Not Resolved]
  - Headache [Not Recovered/Not Resolved]
  - Skin burning sensation [Recovered/Resolved]
  - Panic attack [Recovered/Resolved]
  - Nausea [Not Recovered/Not Resolved]
  - Thinking abnormal [Not Recovered/Not Resolved]
  - Burning sensation [Not Recovered/Not Resolved]
  - Hypoaesthesia [Recovered/Resolved]
  - Diarrhoea [Not Recovered/Not Resolved]

NARRATIVE: CASE EVENT DATE: 20140715
